FAERS Safety Report 19381048 (Version 1)
Quarter: 2021Q2

REPORT INFORMATION
  Report Type: Spontaneous
  Country: US (occurrence: US)
  Receive Date: 20210607
  Receipt Date: 20210607
  Transmission Date: 20210717
  Serious: No
  Sender: FDA-Public Use
  Company Number: US-AUROBINDO-AUR-APL-2020-058275

PATIENT
  Sex: Male

DRUGS (4)
  1. VENLAFAXINE HYDROCHLORIDE EXTENDED?RELEASE CAPSULES 150MG [Suspect]
     Active Substance: VENLAFAXINE HYDROCHLORIDE
     Dosage: 150 MILLIGRAM
     Route: 065
     Dates: start: 20200108, end: 202009
  2. VENLAFAXINE HYDROCHLORIDE EXTENDED?RELEASE CAPSULES 150MG [Suspect]
     Active Substance: VENLAFAXINE HYDROCHLORIDE
     Indication: DEPRESSION
     Dosage: 150 MILLIGRAM, (150 MG + 37.5 MG=187.5 MG)
     Route: 065
     Dates: start: 2013, end: 20200108
  3. VENLAFAXINE HYDROCHLORIDE EXTENDED?RELEASE CAPSULES 37.5MG [Suspect]
     Active Substance: VENLAFAXINE HYDROCHLORIDE
     Indication: DEPRESSION
     Dosage: 37.5 MILLIGRAM  (150+37.5 MG=187.5 MG)
     Route: 065
     Dates: start: 2013, end: 20200108
  4. VENLAFAXINE HYDROCHLORIDE EXTENDED?RELEASE CAPSULES 37.5MG [Suspect]
     Active Substance: VENLAFAXINE HYDROCHLORIDE
     Dosage: 37.5 MILLIGRAM, ONCE A DAY
     Route: 065
     Dates: start: 20201001, end: 20201019

REACTIONS (3)
  - Depression [Not Recovered/Not Resolved]
  - Paraesthesia [Not Recovered/Not Resolved]
  - Feeling abnormal [Not Recovered/Not Resolved]
